FAERS Safety Report 6589259-2 (Version None)
Quarter: 2010Q1

REPORT INFORMATION
  Report Type: 
  Country: None (occurrence: None)
  Receive Date: 20100212
  Receipt Date: 20100123
  Transmission Date: 20100710
  Serious: Yes (Hospitalization)
  Sender: FDA-Public Use
  Company Number: 2010BM000030

PATIENT
  Age: 15 Year
  Sex: Male
  Weight: 19 kg

DRUGS (1)
  1. NAGLAZYME [Suspect]
     Indication: MUCOPOLYSACCHARIDOSIS VI
     Dosage: 4 AMPULES; EVERY 8 DAYS; IVDRP
     Route: 041
     Dates: start: 20071116

REACTIONS (3)
  - BRAIN HYPOXIA [None]
  - PARTIAL SEIZURES [None]
  - PNEUMONIA [None]
